FAERS Safety Report 9484553 (Version 2)
Quarter: 2013Q3

REPORT INFORMATION
  Report Type: Spontaneous
  Country: CA (occurrence: CA)
  Receive Date: 20130828
  Receipt Date: 20130828
  Transmission Date: 20140515
  Serious: Yes (Death)
  Sender: FDA-Public Use
  Company Number: CA-AMGEN-KDL323752

PATIENT
  Age: 80 Year
  Sex: Female
  Weight: 58.1 kg

DRUGS (2)
  1. ENBREL [Suspect]
     Indication: RHEUMATOID ARTHRITIS
     Dosage: UNK UNK, 2 TIMES/WK
     Route: 065
     Dates: start: 20080811
  2. OXYBUTYNIN [Concomitant]
     Dosage: UNK UNK, UNK

REACTIONS (6)
  - Glioblastoma multiforme [Fatal]
  - Nasopharyngitis [Unknown]
  - Joint swelling [Not Recovered/Not Resolved]
  - Needle issue [Unknown]
  - Arthralgia [Not Recovered/Not Resolved]
  - Injection site pain [Unknown]
